FAERS Safety Report 18046094 (Version 1)
Quarter: 2020Q3

REPORT INFORMATION
  Report Type: Spontaneous
  Country: US (occurrence: US)
  Receive Date: 20200720
  Receipt Date: 20200720
  Transmission Date: 20201103
  Serious: No
  Sender: FDA-Public Use
  Company Number: NVSC2020US204290

PATIENT
  Age: 73 Year
  Sex: Male

DRUGS (2)
  1. VOLTAREN EMULGEL [Suspect]
     Active Substance: DICLOFENAC DIETHYLAMINE
     Indication: SKIN ULCER
     Dosage: 2 G, BID
     Route: 065
     Dates: start: 20200710, end: 20200710
  2. VOLTAREN EMULGEL [Suspect]
     Active Substance: DICLOFENAC DIETHYLAMINE
     Indication: ARTHRITIS

REACTIONS (12)
  - Application site irritation [Unknown]
  - Anxiety [Unknown]
  - Product use in unapproved indication [Unknown]
  - Application site haemorrhage [Unknown]
  - Application site scab [Not Recovered/Not Resolved]
  - Product use issue [Unknown]
  - Application site erythema [Not Recovered/Not Resolved]
  - Drug ineffective for unapproved indication [Unknown]
  - Wrong technique in product usage process [Unknown]
  - Malaise [Unknown]
  - Application site pain [Unknown]
  - Feeling cold [Unknown]

NARRATIVE: CASE EVENT DATE: 20200710
